FAERS Safety Report 6079731-6 (Version None)
Quarter: 2009Q1

REPORT INFORMATION
  Report Type: 
  Country: None (occurrence: None)
  Receive Date: 20090217
  Receipt Date: 20090209
  Transmission Date: 20090719
  Serious: Yes (Hospitalization, Other)
  Sender: FDA-Public Use
  Company Number: PHHO2009GB02058

PATIENT
  Sex: Male
  Weight: 59.9 kg

DRUGS (1)
  1. EXELON [Suspect]
     Indication: DEMENTIA
     Dosage: 9MG/5CM2
     Route: 062
     Dates: start: 20090128

REACTIONS (6)
  - ABDOMINAL DISTENSION [None]
  - ABDOMINAL PAIN [None]
  - CONCOMITANT DISEASE PROGRESSION [None]
  - CONSTIPATION [None]
  - INTESTINAL OBSTRUCTION [None]
  - LOWER RESPIRATORY TRACT INFECTION [None]
